FAERS Safety Report 4940411-9 (Version None)
Quarter: 2006Q1

REPORT INFORMATION
  Report Type: 
  Country: None (occurrence: None)
  Receive Date: 20060127
  Receipt Date: 20050210
  Transmission Date: 20060701
  Serious: Yes (Other)
  Sender: FDA-Public Use
  Company Number: 200511116US

PATIENT
  Age: 58 Year
  Sex: Male

DRUGS (1)
  1. AMARYL [Suspect]
     Indication: DIABETES MELLITUS
     Dosage: 1 MG

REACTIONS (1)
  - HYPOGLYCAEMIA [None]
